FAERS Safety Report 14937485 (Version 5)
Quarter: 2019Q4

REPORT INFORMATION
  Report Type: Spontaneous
  Country: ES (occurrence: ES)
  Receive Date: 20180525
  Receipt Date: 20191014
  Transmission Date: 20200122
  Serious: Yes (Life-Threatening, Hospitalization, Disabling, Other)
  Sender: FDA-Public Use
  Company Number: ES-AUROBINDO-AUR-APL-2018-026990

PATIENT
  Age: 5 Year
  Sex: Female
  Weight: 16 kg

DRUGS (3)
  1. IBUPROFEN. [Suspect]
     Active Substance: IBUPROFEN
     Indication: PYREXIA
     Dosage: 5.5 MILLILITER
     Route: 048
     Dates: start: 20150407, end: 20150413
  2. PARACETAMOL [Suspect]
     Active Substance: ACETAMINOPHEN
     Indication: PYREXIA
     Dosage: UNK
     Route: 048
     Dates: start: 201504, end: 201505
  3. PENILEVEL [PHENOXYMETHYLPENICILLIN POTASSIUM] [Suspect]
     Active Substance: PENICILLIN V POTASSIUM
     Indication: PHARYNGOTONSILLITIS
     Dosage: 250 MILLIGRAM, EVERY 12 HOURS
     Route: 048
     Dates: start: 20150407, end: 20150417

REACTIONS (21)
  - Open globe injury [Unknown]
  - Eye disorder [Unknown]
  - Keratitis [Unknown]
  - Dry eye [Unknown]
  - Corneal neovascularisation [Unknown]
  - Limbal stem cell deficiency [Unknown]
  - Pyrexia [Unknown]
  - Fusarium infection [Unknown]
  - Corneal disorder [Recovered/Resolved with Sequelae]
  - Ectropion [Unknown]
  - Visual acuity reduced [Unknown]
  - Photophobia [Unknown]
  - Toxic epidermal necrolysis [Recovered/Resolved with Sequelae]
  - Stevens-Johnson syndrome [Unknown]
  - Corneal leukoma [Unknown]
  - Conjunctivitis [Unknown]
  - Oral mucosal erythema [Unknown]
  - Hypopyon [Recovering/Resolving]
  - Ulcerative keratitis [Recovering/Resolving]
  - Distichiasis [Unknown]
  - Rash maculo-papular [Unknown]

NARRATIVE: CASE EVENT DATE: 20150502
